FAERS Safety Report 10254886 (Version 1)
Quarter: 2014Q2

REPORT INFORMATION
  Report Type: Spontaneous
  Country: US (occurrence: None)
  Receive Date: 20140620
  Receipt Date: 20140620
  Transmission Date: 20141212
  Serious: Yes (Other)
  Sender: FDA-Public Use
  Company Number: None

PATIENT
  Age: 46 Year
  Sex: Female
  Weight: 72.58 kg

DRUGS (1)
  1. ENDOCET [Suspect]
     Indication: PAIN
     Route: 048
     Dates: start: 20140616, end: 20140617

REACTIONS (1)
  - Formication [None]
